FAERS Safety Report 17584934 (Version 1)
Quarter: 2020Q1

REPORT INFORMATION
  Report Type: Spontaneous
  Country: US (occurrence: US)
  Receive Date: 20200326
  Receipt Date: 20200326
  Transmission Date: 20200409
  Serious: No
  Sender: FDA-Public Use
  Company Number: US-VERTEX PHARMACEUTICALS-2020-006731

PATIENT
  Sex: Male
  Weight: 12.7 kg

DRUGS (7)
  1. KALYDECO [Suspect]
     Active Substance: IVACAFTOR
     Indication: CYSTIC FIBROSIS
     Dosage: 75 MG, BID (5ML)
     Route: 048
     Dates: start: 201610
  2. HYPERSAL [Concomitant]
     Active Substance: SODIUM CHLORIDE
     Dosage: VIAL
  3. PULMOZYME [Concomitant]
     Active Substance: DORNASE ALFA
  4. ZYRTEC [Concomitant]
     Active Substance: CETIRIZINE HYDROCHLORIDE
  5. CREON [Concomitant]
     Active Substance: PANCRELIPASE AMYLASE\PANCRELIPASE LIPASE\PANCRELIPASE PROTEASE
     Dosage: 6K-19K-30K
  6. PEDIASURE [CARBOHYDRATES NOS;FATS NOS;MINERALS NOS;PROTEIN;VITAMINS NO [Concomitant]
     Dosage: 0.03G-1/ML LIQUID
  7. ALBUTEROL SULFATE. [Concomitant]
     Active Substance: ALBUTEROL SULFATE

REACTIONS (1)
  - Nasopharyngitis [Not Recovered/Not Resolved]
